FAERS Safety Report 9768273 (Version 1)
Quarter: 2013Q4

REPORT INFORMATION
  Report Type: Spontaneous
  Country: GB (occurrence: GB)
  Receive Date: 20131217
  Receipt Date: 20131217
  Transmission Date: 20140711
  Serious: Yes (Hospitalization)
  Sender: FDA-Public Use
  Company Number: GB-TEVA-449992ISR

PATIENT
  Age: 78 Year
  Sex: Female

DRUGS (5)
  1. RAMIPRIL [Suspect]
     Indication: HYPERTENSION
     Route: 048
     Dates: start: 201009, end: 20131113
  2. OMEPRAZOLE [Concomitant]
     Indication: GASTROOESOPHAGEAL REFLUX DISEASE
     Dosage: STARTED BEFORE 04/2009. IN MEDICATION STORAGE DEVICE.
     Route: 048
  3. BENDROFLUMETHIAZIDE [Concomitant]
     Indication: HYPERTENSION
     Dosage: STARTED BEFORE 04/2011. IN MEDICATION STORAGE DEVICE.
     Route: 048
  4. SERETIDE [Concomitant]
     Indication: ASTHMA
     Dosage: 1 PUFF
     Route: 055
     Dates: start: 201309
  5. TIOTROPIUM [Concomitant]
     Indication: ASTHMA
     Route: 055
     Dates: start: 20110414

REACTIONS (3)
  - Angioedema [Recovering/Resolving]
  - Lip swelling [Recovering/Resolving]
  - Swelling [Recovering/Resolving]
